FAERS Safety Report 12861215 (Version 2)
Quarter: 2016Q4

REPORT INFORMATION
  Report Type: Spontaneous
  Country: US (occurrence: US)
  Receive Date: 20161019
  Receipt Date: 20161019
  Transmission Date: 20170207
  Serious: Yes (Death)
  Sender: FDA-Public Use
  Company Number: US-CIPLA LTD.-2016US19383

PATIENT

DRUGS (13)
  1. RISPERIDONE. [Suspect]
     Active Substance: RISPERIDONE
     Dosage: UNK
     Route: 048
  2. SODIUM VALPROATE [Suspect]
     Active Substance: VALPROATE SODIUM
     Dosage: 500 MG, UNK
     Route: 048
  3. CLORAZEPATE [Suspect]
     Active Substance: CLORAZEPATE DIPOTASSIUM
     Dosage: 100 MG, UNK
     Route: 048
  4. OLANZAPINE. [Suspect]
     Active Substance: OLANZAPINE
     Indication: AGITATION
     Dosage: 40 MG, (1 DOSE OF 10 MG ON 4 SEPERATE DAYS)
     Route: 030
  5. SODIUM VALPROATE [Suspect]
     Active Substance: VALPROATE SODIUM
     Dosage: 500 MG, 1 DOSE, DAY BEFORE HE DIED
     Route: 065
  6. CLONAZEPAM. [Suspect]
     Active Substance: CLONAZEPAM
     Dosage: 6 MG, UNK
     Route: 048
  7. RISPERIDONE. [Suspect]
     Active Substance: RISPERIDONE
     Dosage: 100 MG, DEPOT
     Route: 065
  8. ZUCLOPENTHIXOL-ACUPHASE [Suspect]
     Active Substance: ZUCLOPENTHIXOL
     Dosage: UNK, DAY BEFORE HE DIED
     Route: 030
  9. RISPERIDONE. [Suspect]
     Active Substance: RISPERIDONE
     Dosage: 100 MG, MICROSPHERES (LAST DOSE 2 TO 3 DAYS BEFORE DEATH)
     Route: 065
  10. HALOPERIDOL. [Suspect]
     Active Substance: HALOPERIDOL
     Dosage: UNK
     Route: 030
  11. CLONAZEPAM. [Suspect]
     Active Substance: CLONAZEPAM
     Dosage: 6 MG, 2 DOSES, DAY BEFORE HE DIED
     Route: 065
  12. BIPERIDEN [Suspect]
     Active Substance: BIPERIDEN
     Dosage: UNK, SUSTAINED RELEASE
     Route: 065
  13. RISPERIDONE. [Suspect]
     Active Substance: RISPERIDONE
     Dosage: UNK, 2 DOSES, DAY BEFORE HE DIED
     Route: 048

REACTIONS (1)
  - Cardiac disorder [Fatal]
